FAERS Safety Report 7948980-1 (Version None)
Quarter: 2011Q4

REPORT INFORMATION
  Report Type: 
  Country: None (occurrence: None)
  Receive Date: 20111130
  Receipt Date: 20111124
  Transmission Date: 20120403
  Serious: Yes (Other)
  Sender: FDA-Public Use
  Company Number: AU-PFIZER INC-2011288837

PATIENT
  Sex: Female

DRUGS (2)
  1. EFFEXOR XR [Suspect]
     Dosage: 150 MG, UNK
  2. EFFEXOR XR [Suspect]
     Indication: DEPRESSION
     Dosage: 150 MG, UNK

REACTIONS (2)
  - HYPOGLYCAEMIA [None]
  - FALL [None]
